FAERS Safety Report 6619048-1 (Version None)
Quarter: 2010Q1

REPORT INFORMATION
  Report Type: 
  Country: None (occurrence: None)
  Receive Date: 20100308
  Receipt Date: 20100224
  Transmission Date: 20100710
  Serious: Yes (Other)
  Sender: FDA-Public Use
  Company Number: IT-PFIZER INC-2009298566

PATIENT
  Age: 65 Year
  Sex: Male

DRUGS (1)
  1. TOVIAZ [Suspect]
     Indication: RADICAL PROSTATECTOMY
     Dosage: 8 MG, 1X/DAY
     Route: 048
     Dates: start: 20091015

REACTIONS (5)
  - DIARRHOEA [None]
  - DRY THROAT [None]
  - FLATULENCE [None]
  - ILEUS PARALYTIC [None]
  - RESPIRATORY DISORDER [None]
